FAERS Safety Report 24990423 (Version 1)
Quarter: 2025Q1

REPORT INFORMATION
  Report Type: Spontaneous
  Country: US (occurrence: None)
  Receive Date: 20250219
  Receipt Date: 20250219
  Transmission Date: 20250408
  Serious: Yes (Disabling)
  Sender: FDA-CTU
  Company Number: None

PATIENT
  Age: 84 Year
  Sex: Male
  Weight: 86 kg

DRUGS (5)
  1. EMPAGLIFLOZIN [Suspect]
     Active Substance: EMPAGLIFLOZIN
     Indication: Hypertension
     Dosage: FREQUENCY : DAILY;?
     Route: 048
     Dates: start: 20240528, end: 20241229
  2. EMPAGLIFLOZIN [Suspect]
     Active Substance: EMPAGLIFLOZIN
     Indication: Renal disorder prophylaxis
  3. LISINOPRIL [Concomitant]
     Active Substance: LISINOPRIL
  4. APIXABAN [Concomitant]
     Active Substance: APIXABAN
  5. coreg 25 mg [Concomitant]

REACTIONS (2)
  - Gangrene [None]
  - Amputation [None]

NARRATIVE: CASE EVENT DATE: 20241229
